FAERS Safety Report 19042142 (Version 1)
Quarter: 2021Q1

REPORT INFORMATION
  Report Type: Not Available
  Country: None (occurrence: None)
  Receive Date: 20210322
  Receipt Date: 20210322
  Transmission Date: 20210420
  Serious: No
  Sender: FDA-Public Use
  Company Number: US-AKORN-162686

PATIENT
  Sex: Female

DRUGS (1)
  1. CLOBETASOL PROPIONATE CREAM [Suspect]
     Active Substance: CLOBETASOL PROPIONATE

REACTIONS (2)
  - Expired product administered [Recovered/Resolved]
  - Skin irritation [Unknown]
